FAERS Safety Report 15334124 (Version 1)
Quarter: 2018Q3

REPORT INFORMATION
  Report Type: Spontaneous
  Country: US (occurrence: US)
  Receive Date: 20180826
  Receipt Date: 20180826
  Transmission Date: 20181010
  Serious: Yes (Hospitalization)
  Sender: FDA-Public Use
  Company Number: None

PATIENT
  Age: 31 Year
  Sex: Female
  Weight: 50.85 kg

DRUGS (1)
  1. MONSELS SOLUTION [Suspect]
     Active Substance: FERRIC SUBSULFATE
     Indication: INTRA-UTERINE CONTRACEPTIVE DEVICE REMOVAL
     Route: 067
     Dates: start: 20180821, end: 20180821

REACTIONS (8)
  - Dysuria [None]
  - Vaginal disorder [None]
  - Vaginal exfoliation [None]
  - Chemical burn [None]
  - Urethral disorder [None]
  - Pigmentation disorder [None]
  - Scab [None]
  - Swelling [None]

NARRATIVE: CASE EVENT DATE: 20180822
